FAERS Safety Report 23744221 (Version 6)
Quarter: 2024Q3

REPORT INFORMATION
  Report Type: Report from Study
  Country: US (occurrence: US)
  Receive Date: 20240415
  Receipt Date: 20240812
  Transmission Date: 20241016
  Serious: Yes (Other)
  Sender: DECIPHERA PHARMACEUTICALS
  Company Number: US-DECIPHERA PHARMACEUTICALS LLC-2024US000332

PATIENT
  Age: 91 Year
  Sex: Female

DRUGS (20)
  1. QINLOCK [Suspect]
     Active Substance: RIPRETINIB
     Indication: Malignant connective tissue neoplasm
     Dosage: UNK
     Dates: start: 20240213, end: 2024
  2. QINLOCK [Suspect]
     Active Substance: RIPRETINIB
     Dosage: 100 MILLIGRAM, QD
     Route: 048
     Dates: start: 2024, end: 2024
  3. QINLOCK [Suspect]
     Active Substance: RIPRETINIB
     Dosage: 150 MILLIGRAM, QD (ONCE DAILY WITH OR WITHOUT FOOD)
     Route: 048
     Dates: start: 2024
  4. QINLOCK [Suspect]
     Active Substance: RIPRETINIB
     Dosage: 150 MILLIGRAM, QD (ONCE DAILY WITH OR WITHOUT FOOD)
     Route: 048
     Dates: start: 2024, end: 20240722
  5. HYDRALAZINE [Concomitant]
     Active Substance: HYDRALAZINE HYDROCHLORIDE
     Indication: Product used for unknown indication
     Dosage: UNK
  6. ELIQUIS [Concomitant]
     Active Substance: APIXABAN
     Indication: Product used for unknown indication
     Dosage: UNK
  7. AMITRIPTYLINE [Concomitant]
     Active Substance: AMITRIPTYLINE
     Indication: Product used for unknown indication
     Dosage: UNK
  8. ASPIRIN [Concomitant]
     Active Substance: ASPIRIN
     Indication: Product used for unknown indication
     Dosage: UNK
  9. ATORVASTATIN [Concomitant]
     Active Substance: ATORVASTATIN
     Indication: Product used for unknown indication
     Dosage: UNK
  10. LACTOBACILLUS ACIDOPHILUS [Concomitant]
     Active Substance: LACTOBACILLUS ACIDOPHILUS
     Indication: Product used for unknown indication
     Dosage: UNK
  11. GLUCOSAMINE [Concomitant]
     Active Substance: GLUCOSAMINE
     Indication: Product used for unknown indication
     Dosage: UNK
  12. HYDROCHLOROTHIAZIDE [Concomitant]
     Active Substance: HYDROCHLOROTHIAZIDE
     Indication: Product used for unknown indication
     Dosage: UNK
  13. HYOSCYAMINE [Concomitant]
     Active Substance: HYOSCYAMINE
     Indication: Product used for unknown indication
     Dosage: UNK
  14. LEVOTHYROXINE [Concomitant]
     Active Substance: LEVOTHYROXINE\LEVOTHYROXINE SODIUM
     Indication: Product used for unknown indication
     Dosage: UNK
  15. LOPERAMIDE [Concomitant]
     Active Substance: LOPERAMIDE
     Indication: Product used for unknown indication
     Dosage: UNK
  16. VITAMINS [Concomitant]
     Active Substance: VITAMINS
     Indication: Product used for unknown indication
     Dosage: UNK
  17. NEBIVOLOL [Concomitant]
     Active Substance: NEBIVOLOL
     Indication: Product used for unknown indication
     Dosage: UNK
  18. OMEPRAZOLE [Concomitant]
     Active Substance: OMEPRAZOLE
     Indication: Product used for unknown indication
     Dosage: UNK
  19. VITAMIN B-COMPLEX WITH VITAMIN C [ASCORBIC ACID;BIOTIN;CALCIUM PANTOTH [Concomitant]
     Indication: Product used for unknown indication
     Dosage: UNK
  20. VITAMIN D2 [Concomitant]
     Active Substance: ERGOCALCIFEROL
     Indication: Product used for unknown indication
     Dosage: UNK

REACTIONS (13)
  - Cardiac disorder [Not Recovered/Not Resolved]
  - Malignant neoplasm progression [Not Recovered/Not Resolved]
  - Haematemesis [Not Recovered/Not Resolved]
  - Asthenia [Not Recovered/Not Resolved]
  - Dyspnoea [Not Recovered/Not Resolved]
  - Acrochordon [Not Recovered/Not Resolved]
  - Presyncope [Not Recovered/Not Resolved]
  - Blood pressure decreased [Not Recovered/Not Resolved]
  - Blood pressure increased [Not Recovered/Not Resolved]
  - Vomiting [Unknown]
  - Dry skin [Not Recovered/Not Resolved]
  - Alopecia [Not Recovered/Not Resolved]
  - Product use in unapproved indication [Unknown]

NARRATIVE: CASE EVENT DATE: 20240101
